FAERS Safety Report 5498978-0 (Version None)
Quarter: 2007Q4

REPORT INFORMATION
  Report Type: 
  Country: None (occurrence: None)
  Receive Date: 20071026
  Receipt Date: 20070511
  Transmission Date: 20080405
  Serious: No
  Sender: FDA-Public Use
  Company Number: A0651019A

PATIENT
  Age: 85 Year
  Sex: Female

DRUGS (4)
  1. ADVAIR DISKUS 100/50 [Suspect]
     Indication: CHRONIC OBSTRUCTIVE PULMONARY DISEASE
     Route: 055
  2. POTASSIUM CHLORIDE [Concomitant]
  3. OXYGEN [Concomitant]
  4. SPIRIVA [Concomitant]

REACTIONS (6)
  - HEADACHE [None]
  - HEART RATE IRREGULAR [None]
  - HYPOAESTHESIA [None]
  - ORAL CANDIDIASIS [None]
  - OSTEOPOROSIS [None]
  - PARAESTHESIA [None]
